FAERS Safety Report 9015094 (Version 1)
Quarter: 2013Q1

REPORT INFORMATION
  Report Type: Spontaneous
  Country: US (occurrence: US)
  Receive Date: 20130116
  Receipt Date: 20130116
  Transmission Date: 20140127
  Serious: No
  Sender: FDA-Public Use
  Company Number: US-BIOGENIDEC-2013BI004136

PATIENT
  Sex: Female

DRUGS (4)
  1. AVONEX [Suspect]
     Indication: MULTIPLE SCLEROSIS
     Route: 030
     Dates: start: 20030214, end: 20060303
  2. AVONEX [Suspect]
     Indication: MULTIPLE SCLEROSIS
     Route: 030
     Dates: start: 20070113, end: 200806
  3. AVONEX [Suspect]
     Indication: MULTIPLE SCLEROSIS
     Route: 030
     Dates: start: 200911
  4. NAPROXEN [Concomitant]
     Indication: INFLUENZA LIKE ILLNESS

REACTIONS (3)
  - Nasopharyngitis [Recovered/Resolved]
  - Sinusitis [Not Recovered/Not Resolved]
  - Influenza like illness [Recovered/Resolved]
